FAERS Safety Report 8084629 (Version 4)
Quarter: 2013Q1

REPORT INFORMATION
  Report Type: Report from Study
  Country: FR (occurrence: FR)
  Receive Date: 20110810
  Receipt Date: 20130228
  Transmission Date: 20140127
  Serious: Yes (Death, Hospitalization)
  Sender: FDA-Public Use
  Company Number: FR-JNJFOC-20110802436

PATIENT
  Sex: Male

DRUGS (9)
  1. ABIRATERONE [Suspect]
     Route: 048
  2. ABIRATERONE [Suspect]
     Indication: PROSTATE CANCER
     Dosage: INITIATED LESS THAN 3 MONTHS
     Route: 048
     Dates: start: 20110611, end: 20110803
  3. CORTANCYL [Suspect]
     Indication: PRODUCT USED FOR UNKNOWN INDICATION
     Dosage: IN THE MORNING
     Route: 048
     Dates: start: 20110611
  4. TEMERIT [Concomitant]
     Indication: HYPERTENSION
     Route: 065
  5. NITRENDIPINE [Concomitant]
     Indication: HYPERTENSION
     Route: 065
  6. HYTACAND [Concomitant]
     Indication: PRODUCT USED FOR UNKNOWN INDICATION
     Route: 065
  7. SOLU-MEDROL [Concomitant]
     Indication: PRODUCT USED FOR UNKNOWN INDICATION
     Route: 065
  8. PARAFFIN [Concomitant]
     Indication: PRODUCT USED FOR UNKNOWN INDICATION
     Route: 065
  9. MOVICOL [Concomitant]
     Indication: PRODUCT USED FOR UNKNOWN INDICATION
     Route: 065

REACTIONS (5)
  - Cardiac failure [Fatal]
  - Pulmonary oedema [Fatal]
  - Myocardial ischaemia [Unknown]
  - Spinal cord compression [Unknown]
  - Lung disorder [Unknown]
